FAERS Safety Report 10341858 (Version 2)
Quarter: 2014Q4

REPORT INFORMATION
  Report Type: Report from Study
  Country: KR (occurrence: KR)
  Receive Date: 20140725
  Receipt Date: 20141023
  Transmission Date: 20150528
  Serious: No
  Sender: FDA-Public Use
  Company Number: PHHY2014KR091147

PATIENT
  Age: 64 Year
  Sex: Male

DRUGS (15)
  1. MAXNOPHEN [Concomitant]
     Indication: PROPHYLAXIS
     Dosage: 3 DF, UNK
     Route: 048
     Dates: start: 20140120, end: 20140127
  2. AMN107 [Suspect]
     Active Substance: NILOTINIB
     Indication: CHRONIC MYELOID LEUKAEMIA
     Dosage: 600 MG, QD
     Route: 048
     Dates: start: 20140117, end: 20140218
  3. MOTILIDONE [Concomitant]
     Indication: NAUSEA
     Dosage: 90 MG, UNK
     Route: 048
     Dates: start: 20140118, end: 20140119
  4. TYLENOL ER [Concomitant]
     Active Substance: ACETAMINOPHEN
     Indication: HEADACHE
     Dosage: 650 MG, BID
     Route: 048
     Dates: start: 20140118, end: 20140119
  5. URSA [Concomitant]
     Indication: PROPHYLAXIS
     Dosage: 100 MG, UNK
     Route: 048
     Dates: start: 20140210, end: 20140210
  6. BESTIDINE [Concomitant]
     Indication: NAUSEA
     Dosage: 2 DF, UNK
     Route: 048
     Dates: start: 20140123, end: 20140218
  7. SEPTRIN [Concomitant]
     Active Substance: SULFAMETHOXAZOLE\TRIMETHOPRIM
     Indication: PROPHYLAXIS
     Dosage: 2 DF, UNK
     Route: 048
     Dates: start: 20140120, end: 20140127
  8. AMN107 [Suspect]
     Active Substance: NILOTINIB
     Dosage: 600 MG, QD
     Route: 048
     Dates: start: 20140326
  9. MOTILIDONE [Concomitant]
     Indication: PROPHYLAXIS
     Dosage: 60 MG, UNK
     Route: 048
     Dates: start: 20140123, end: 20140218
  10. ACLOVA//ACICLOVIR [Concomitant]
     Indication: PROPHYLAXIS
     Dosage: 600 MG, UNK
     Route: 048
     Dates: start: 20140120, end: 20140127
  11. AMN107 [Suspect]
     Active Substance: NILOTINIB
     Dosage: 400 MG, QD
     Route: 048
     Dates: start: 20140305, end: 20140325
  12. CRAVIT [Concomitant]
     Active Substance: LEVOFLOXACIN
     Indication: PROPHYLAXIS
     Dosage: 500 MG, UNK
     Route: 048
     Dates: start: 20140120, end: 20140127
  13. DIFLUCAN [Concomitant]
     Active Substance: FLUCONAZOLE
     Indication: PROPHYLAXIS
     Dosage: 100 MG, UNK
     Route: 048
     Dates: start: 20140120, end: 20140127
  14. ACIFOL//FOLIC ACID [Concomitant]
     Active Substance: FOLIC ACID
     Indication: PROPHYLAXIS
     Dosage: 2 MG, UNK
     Route: 048
     Dates: start: 20140120, end: 20140127
  15. MOTILIDONE [Concomitant]
     Indication: ABDOMINAL DISCOMFORT
     Dosage: 60 MG, UNK
     Route: 048
     Dates: start: 20140409

REACTIONS (1)
  - Feeling hot [Recovered/Resolved]

NARRATIVE: CASE EVENT DATE: 20140210
